FAERS Safety Report 9822120 (Version 1)
Quarter: 2014Q1

REPORT INFORMATION
  Report Type: Spontaneous
  Country: US (occurrence: US)
  Receive Date: 20140116
  Receipt Date: 20140116
  Transmission Date: 20141002
  Serious: Yes (Other)
  Sender: FDA-Public Use
  Company Number: US-GLAXOSMITHKLINE-A1056177A

PATIENT
  Age: 64 Year
  Sex: Female

DRUGS (3)
  1. ADVAIR [Suspect]
     Indication: ASTHMA
     Dosage: 1PUFF TWICE PER DAY
     Route: 055
  2. THEOPHYLLINE [Concomitant]
  3. AMBIEN [Concomitant]

REACTIONS (3)
  - Rib fracture [Unknown]
  - Fall [Unknown]
  - Musculoskeletal chest pain [Unknown]
